FAERS Safety Report 9048905 (Version 1)
Quarter: 2013Q1

REPORT INFORMATION
  Report Type: Spontaneous
  Country: US (occurrence: None)
  Receive Date: 20130129
  Receipt Date: 20130129
  Transmission Date: 20140127
  Serious: Yes (Other)
  Sender: FDA-Public Use
  Company Number: None

PATIENT
  Sex: Male
  Weight: 44.91 kg

DRUGS (1)
  1. OLANZAPINE 20 MG [Suspect]
     Indication: AUTISM
     Dates: start: 201111, end: 201112

REACTIONS (3)
  - Abnormal behaviour [None]
  - Educational problem [None]
  - Product substitution issue [None]
